FAERS Safety Report 18618419 (Version 3)
Quarter: 2020Q4

REPORT INFORMATION
  Report Type: Spontaneous
  Country: FR (occurrence: FR)
  Receive Date: 20201215
  Receipt Date: 20201221
  Transmission Date: 20210114
  Serious: Yes (Death, Other)
  Sender: FDA-Public Use
  Company Number: FR-PFIZER INC-2020491076

PATIENT
  Age: 43 Year
  Sex: Male

DRUGS (2)
  1. METHADONE HYDROCHLORIDE. [Interacting]
     Active Substance: METHADONE HYDROCHLORIDE
     Dosage: UNK
  2. LYRICA [Suspect]
     Active Substance: PREGABALIN
     Dosage: UNK

REACTIONS (5)
  - Asphyxia [Fatal]
  - Intentional product misuse [Fatal]
  - Drug interaction [Fatal]
  - Overdose [Fatal]
  - Visceral congestion [Fatal]
